FAERS Safety Report 6178554-7 (Version None)
Quarter: 2009Q2

REPORT INFORMATION
  Report Type: 
  Country: None (occurrence: None)
  Receive Date: 20090430
  Receipt Date: 20090417
  Transmission Date: 20091009
  Serious: Yes (Life-Threatening, Hospitalization)
  Sender: FDA-Public Use
  Company Number: 1000005960

PATIENT
  Age: 52 Year
  Sex: Female

DRUGS (4)
  1. CITALOPRAM HYDROBROMIDE [Suspect]
     Indication: MULTIPLE SCLEROSIS
     Dosage: 20 MG, (20 MG, 1 IN 1 D), ORAL
     Route: 048
  2. DICLOFENAC [Suspect]
     Indication: MULTIPLE SCLEROSIS
     Dosage: 150 MG (75 MG, 2 IN 1 D), ORAL
     Route: 048
     Dates: end: 20090320
  3. BACLOFEN [Concomitant]
  4. CARBAMAZEPINE [Concomitant]

REACTIONS (2)
  - ABDOMINAL DISCOMFORT [None]
  - HAEMATEMESIS [None]
